FAERS Safety Report 19186443 (Version 1)
Quarter: 2021Q2

REPORT INFORMATION
  Report Type: Spontaneous
  Country: BE (occurrence: BE)
  Receive Date: 20210427
  Receipt Date: 20210427
  Transmission Date: 20210717
  Serious: Yes (Other)
  Sender: FDA-Public Use
  Company Number: BE-PFIZER INC-2021095629

PATIENT
  Age: 60 Year
  Sex: Female
  Weight: 80 kg

DRUGS (15)
  1. IBUPROFEN EG [Concomitant]
     Active Substance: IBUPROFEN
     Dosage: FREQ:8 H;
  2. DEXAMETHASONE. [Concomitant]
     Active Substance: DEXAMETHASONE
     Dosage: TMF DEXAMETHASONETAKEN 1 DOSAGE FORM ON THE EVENING BEFORE CHEMO AT 12H AND 6H BEFORE CHEMO
  3. BISOPROLOL EG [Concomitant]
     Active Substance: BISOPROLOL
     Dosage: TAKEN IN THE MORNING
  4. IBUPROFEN EG [Concomitant]
     Active Substance: IBUPROFEN
     Dosage: TAKEN IN THE MORNING
  5. PARACETAMOL EG [Concomitant]
     Active Substance: ACETAMINOPHEN
  6. LITICAN [ALIZAPRIDE] [Concomitant]
     Dosage: FREQ:8 H;
  7. ATORSTATINEG [Concomitant]
     Dosage: TAKEN IN THE MORNING
  8. PACLITAXEL. [Suspect]
     Active Substance: PACLITAXEL
     Dosage: 175MG/M2, EVERY 3 WEEKS
     Dates: end: 20201120
  9. ASAFLOW [Concomitant]
     Active Substance: ASPIRIN
     Dosage: TAKEN IN THE MORNING
  10. MOVICOL [Concomitant]
     Active Substance: POLYETHYLENE GLYCOL 3350\POTASSIUM CHLORIDE\SODIUM BICARBONATE\SODIUM CHLORIDE
     Dosage: EVERY 24 HOURS IN CASE OF CONSTIPATION
  11. ZANIDIP [Concomitant]
     Active Substance: LERCANIDIPINE HYDROCHLORIDE
     Dosage: TAKEN IN THE MORNING
  12. PRIMPERAN [Concomitant]
     Active Substance: METOCLOPRAMIDE HYDROCHLORIDE
     Dosage: FREQ:6 H;
  13. PANTOMED [DEXPANTHENOL] [Concomitant]
     Dosage: TAKEN SOBER
  14. PARACETAMOL EG [Concomitant]
     Active Substance: ACETAMINOPHEN
     Dosage: FREQ:6 H;
  15. MICARDISPLUS [Concomitant]
     Active Substance: HYDROCHLOROTHIAZIDE\TELMISARTAN
     Dosage: TAKEN IN THE MORNING

REACTIONS (5)
  - Hypersensitivity [Recovered/Resolved]
  - Throat tightness [Recovered/Resolved]
  - Hypotension [Recovered/Resolved]
  - Swelling face [Recovered/Resolved]
  - Rash [Recovered/Resolved]

NARRATIVE: CASE EVENT DATE: 20201120
